FAERS Safety Report 20990691 (Version 1)
Quarter: 2022Q2

REPORT INFORMATION
  Report Type: Spontaneous
  Country: US (occurrence: US)
  Receive Date: 20220622
  Receipt Date: 20220622
  Transmission Date: 20220721
  Serious: No
  Sender: FDA-Public Use
  Company Number: US-BRISTOL-MYERS SQUIBB COMPANY-2022-058414

PATIENT
  Age: 90 Year
  Sex: Male
  Weight: 66.22 kg

DRUGS (1)
  1. LENALIDOMIDE [Suspect]
     Active Substance: LENALIDOMIDE
     Indication: Plasma cell myeloma
     Dosage: FREQ- 21 DAYS ON 7DAYS OFF.
     Route: 048
     Dates: start: 20220401

REACTIONS (1)
  - COVID-19 [Unknown]
